FAERS Safety Report 17338968 (Version 1)
Quarter: 2020Q1

REPORT INFORMATION
  Report Type: Spontaneous
  Country: IN (occurrence: IN)
  Receive Date: 20200129
  Receipt Date: 20200129
  Transmission Date: 20200409
  Serious: Yes (Other)
  Sender: FDA-Public Use
  Company Number: IN-FRESENIUS KABI-FK202000894

PATIENT
  Age: 41 Year
  Sex: Female

DRUGS (5)
  1. DEXAMETHASONE INJECTION (MANUFACTURER UNKNOWN) [Suspect]
     Active Substance: DEXAMETHASONE
     Indication: PLASMA CELL MYELOMA
     Route: 065
  2. CARFILZOMIB [Suspect]
     Active Substance: CARFILZOMIB
     Indication: PLASMA CELL MYELOMA
     Route: 065
  3. FEBUXOSTAT. [Concomitant]
     Active Substance: FEBUXOSTAT
     Indication: TUMOUR LYSIS SYNDROME
  4. FEBUXOSTAT. [Concomitant]
     Active Substance: FEBUXOSTAT
     Indication: PROPHYLAXIS
     Route: 065
  5. LENALIDOMIDE [Suspect]
     Active Substance: LENALIDOMIDE
     Indication: PLASMA CELL MYELOMA
     Route: 065

REACTIONS (2)
  - Thrombotic microangiopathy [Recovered/Resolved]
  - Tumour lysis syndrome [Recovered/Resolved]
